FAERS Safety Report 8378178-7 (Version None)
Quarter: 2012Q2

REPORT INFORMATION
  Report Type: 
  Country: None (occurrence: None)
  Receive Date: 20120521
  Receipt Date: 20120507
  Transmission Date: 20120825
  Serious: Yes (Disabling)
  Sender: FDA-Public Use
  Company Number: 2012MA000608

PATIENT
  Age: 68 Year
  Sex: Male

DRUGS (7)
  1. MIRTAZAPINE TABLETS, 15 MG (PUREPAC) (MITRAZAPINE) [Suspect]
     Indication: DEPRESSION
     Dosage: 15 MG; QD
  2. MIRTAZAPINE [Suspect]
     Indication: DEPRESSION
     Dosage: 15 MG; QD
     Dates: start: 20111230, end: 20111231
  3. ASACOL [Concomitant]
  4. CITALOPRAM HYDROBROMIDE [Concomitant]
  5. LOCERYL [Concomitant]
  6. TIMOLOL MALEATE [Concomitant]
  7. SIMVASTATIN [Concomitant]

REACTIONS (6)
  - MUSCLE TWITCHING [None]
  - NOCTURIA [None]
  - DIZZINESS [None]
  - HEADACHE [None]
  - DYSURIA [None]
  - POLLAKIURIA [None]
